FAERS Safety Report 7174904-3 (Version None)
Quarter: 2011Q1

REPORT INFORMATION
  Report Type: 
  Country: None (occurrence: None)
  Receive Date: 20101219
  Receipt Date: 20101206
  Transmission Date: 20110831
  Serious: Yes (Hospitalization)
  Sender: FDA-Public Use
  Company Number: DE-MYLANLABS-2010S1018866

PATIENT
  Age: 49 Year
  Sex: Male
  Weight: 140 kg

DRUGS (2)
  1. AMLODIPINE [Suspect]
     Indication: HYPERTENSION
  2. AMLODIPINE BESYLATE AND VALSARTAN [Interacting]
     Indication: HYPERTENSION
     Dates: start: 20100804

REACTIONS (2)
  - DRUG ADMINISTRATION ERROR [None]
  - HAEMOLYTIC ANAEMIA [None]
